FAERS Safety Report 6014706-4 (Version None)
Quarter: 2008Q4

REPORT INFORMATION
  Report Type: 
  Country: None (occurrence: None)
  Receive Date: 20081216
  Receipt Date: 20080904
  Transmission Date: 20090506
  Serious: Yes (Hospitalization)
  Sender: FDA-Public Use
  Company Number: US-WYE-H05929708

PATIENT
  Age: 44 Year
  Sex: Female

DRUGS (1)
  1. EFFEXOR XR [Suspect]
     Dosage: 300 MG 1X PER 1 DAY
     Dates: start: 20071001

REACTIONS (6)
  - DRUG WITHDRAWAL SYNDROME [None]
  - HEADACHE [None]
  - MAJOR DEPRESSION [None]
  - MALAISE [None]
  - NERVOUSNESS [None]
  - SUICIDAL IDEATION [None]
